FAERS Safety Report 7215572-1 (Version None)
Quarter: 2011Q1

REPORT INFORMATION
  Report Type: 
  Country: None (occurrence: None)
  Receive Date: 20110107
  Receipt Date: 20101231
  Transmission Date: 20110831
  Serious: Yes (Other)
  Sender: FDA-Public Use
  Company Number: FR-SANOFI-AVENTIS-2011SA000071

PATIENT
  Age: 71 Year
  Sex: Female

DRUGS (2)
  1. TAXOTERE [Suspect]
     Indication: BREAST CANCER METASTATIC
     Dates: start: 20100119, end: 20100802
  2. AVASTIN [Suspect]
     Indication: BREAST CANCER METASTATIC
     Dosage: DOSE:25 MILLIGRAM(S)/MILLILITRE
     Dates: start: 20100119, end: 20100802

REACTIONS (1)
  - PROTEINURIA [None]
